FAERS Safety Report 9295477 (Version 1)
Quarter: 2013Q2

REPORT INFORMATION
  Report Type: Report from Study
  Country: CH (occurrence: CH)
  Receive Date: 20130517
  Receipt Date: 20130517
  Transmission Date: 20140414
  Serious: Yes (Hospitalization)
  Sender: FDA-Public Use
  Company Number: CH-SANOFI-AVENTIS-2013SA049060

PATIENT
  Age: 65 Year
  Sex: Male

DRUGS (8)
  1. CABAZITAXEL [Suspect]
     Indication: PROSTATE CANCER METASTATIC
     Route: 042
  2. PREDNISONE [Suspect]
     Indication: PROSTATE CANCER METASTATIC
     Route: 048
     Dates: start: 20130411, end: 20130429
  3. ECOFENAC [Suspect]
     Indication: PRODUCT USED FOR UNKNOWN INDICATION
     Route: 048
     Dates: start: 20130419, end: 20130429
  4. FENTANYL [Concomitant]
     Dates: start: 20130411
  5. PANTOPRAZOLE [Concomitant]
     Route: 048
     Dates: start: 20130411
  6. DAFALGAN [Concomitant]
     Route: 048
     Dates: start: 20130411
  7. PRIMPERAN [Concomitant]
     Route: 048
     Dates: start: 20130411, end: 20130429
  8. DEXAMETHASONE SODIUM PHOSPHATE [Concomitant]
     Route: 042
     Dates: start: 20130411, end: 20130429

REACTIONS (1)
  - Gastric ulcer perforation [Recovered/Resolved]
